FAERS Safety Report 7012676-3 (Version None)
Quarter: 2010Q3

REPORT INFORMATION
  Report Type: 
  Country: None (occurrence: None)
  Receive Date: 20100924
  Receipt Date: 20100914
  Transmission Date: 20110219
  Serious: Yes (Hospitalization)
  Sender: FDA-Public Use
  Company Number: FR-ROCHE-727591

PATIENT
  Sex: Female

DRUGS (4)
  1. AVASTIN [Suspect]
     Route: 042
     Dates: start: 20100101, end: 20100617
  2. PRACTAZIN [Suspect]
     Indication: PRODUCT USED FOR UNKNOWN INDICATION
     Dosage: FORM: DVISABLE COATED TABLET
     Route: 048
     Dates: start: 20100501, end: 20100704
  3. TAXOTERE [Suspect]
     Route: 042
     Dates: start: 20100101, end: 20100617
  4. EPREX [Concomitant]
     Dates: start: 20100702

REACTIONS (1)
  - RENAL FAILURE [None]
